FAERS Safety Report 14576842 (Version 1)
Quarter: 2018Q1

REPORT INFORMATION
  Report Type: Report from Study
  Country: None (occurrence: GB)
  Receive Date: 20180227
  Receipt Date: 20180227
  Transmission Date: 20180509
  Serious: Yes (Hospitalization)
  Sender: FDA-Public Use
  Company Number: GB-ABBVIE-18K-167-2216712-00

PATIENT
  Age: 47 Year
  Sex: Female

DRUGS (3)
  1. HUMIRA [Suspect]
     Active Substance: ADALIMUMAB
     Indication: POLYARTHRITIS
     Route: 058
     Dates: start: 20180102, end: 20180102
  2. HUMIRA [Suspect]
     Active Substance: ADALIMUMAB
     Indication: RHEUMATOID ARTHRITIS
  3. ERYTHROMYCIN. [Concomitant]
     Active Substance: ERYTHROMYCIN
     Indication: PRODUCT USED FOR UNKNOWN INDICATION
     Route: 048

REACTIONS (9)
  - Heart rate increased [Unknown]
  - Lower respiratory tract infection [Unknown]
  - Headache [Unknown]
  - Musculoskeletal pain [Unknown]
  - Trismus [Unknown]
  - Musculoskeletal stiffness [Unknown]
  - Joint stiffness [Unknown]
  - Influenza like illness [Recovered/Resolved]
  - Pain [Unknown]

NARRATIVE: CASE EVENT DATE: 2018
